FAERS Safety Report 17554560 (Version 1)
Quarter: 2020Q1

REPORT INFORMATION
  Report Type: Spontaneous
  Country: DE (occurrence: DE)
  Receive Date: 20200318
  Receipt Date: 20200318
  Transmission Date: 20200409
  Serious: Yes (Hospitalization)
  Sender: FDA-Public Use
  Company Number: NVSC2020DE071783

PATIENT
  Age: 56 Year
  Sex: Female
  Weight: 83 kg

DRUGS (14)
  1. CALCIUM FOLINATE [Suspect]
     Active Substance: LEUCOVORIN CALCIUM
     Dosage: 400 MG
     Route: 065
     Dates: start: 20191112
  2. OXALIPLATIN. [Suspect]
     Active Substance: OXALIPLATIN
     Dosage: 90 MG
     Route: 065
     Dates: start: 20191112
  3. FLUOROURACIL. [Suspect]
     Active Substance: FLUOROURACIL
     Indication: COLORECTAL CANCER METASTATIC
     Dosage: 4836 MG
     Route: 042
  4. VECTIBIX [Suspect]
     Active Substance: PANITUMUMAB
     Dosage: 250 MG
     Route: 042
     Dates: start: 20191126
  5. FLUOROURACIL. [Suspect]
     Active Substance: FLUOROURACIL
     Dosage: 400 MG
     Route: 040
     Dates: start: 20191112
  6. VECTIBIX [Suspect]
     Active Substance: PANITUMUMAB
     Indication: COLORECTAL CANCER METASTATIC
     Dosage: 502 MG
     Route: 042
     Dates: start: 20190910
  7. GRANISETRON [Concomitant]
     Active Substance: GRANISETRON
     Indication: PROPHYLAXIS OF NAUSEA AND VOMITING
     Dosage: 3 MG {3 MILLIGRAM PER CYCLE}
     Route: 042
     Dates: start: 20190910
  8. TAVEGIL [Concomitant]
     Active Substance: CLEMASTINE FUMARATE
     Indication: ALLERGY PROPHYLAXIS
     Dosage: 2 MG {2 MILLIGRAM PER CYCLE}
     Route: 042
     Dates: start: 20190910
  9. DEXAMETHASONE. [Concomitant]
     Active Substance: DEXAMETHASONE
     Indication: PROPHYLAXIS OF NAUSEA AND VOMITING
     Dosage: UNK {8 MILLIGRAM, QD AND 16 MILLIGRAM PER CYCLE}
     Route: 048
     Dates: start: 20190910
  10. CALCIUM FOLINATE [Suspect]
     Active Substance: LEUCOVORIN CALCIUM
     Indication: COLORECTAL CANCER METASTATIC
     Dosage: 744 MG
     Route: 065
     Dates: start: 20190910
  11. OXALIPLATIN. [Suspect]
     Active Substance: OXALIPLATIN
     Indication: COLORECTAL CANCER METASTATIC
     Dosage: 186 MG
     Route: 065
     Dates: start: 20190910
  12. FLUOROURACIL. [Suspect]
     Active Substance: FLUOROURACIL
     Dosage: 2400 MG
     Route: 042
     Dates: start: 20191112
  13. FLUOROURACIL. [Suspect]
     Active Substance: FLUOROURACIL
     Dosage: 744 MG
     Route: 040
     Dates: start: 20190910
  14. ONDANSETRON [Concomitant]
     Active Substance: ONDANSETRON
     Indication: PROPHYLAXIS OF NAUSEA AND VOMITING
     Dosage: 8 MG {8 MILLIGRAM, AS NECESSARY}
     Route: 048
     Dates: start: 20190910

REACTIONS (2)
  - Diarrhoea [Recovered/Resolved]
  - Constipation [Not Recovered/Not Resolved]

NARRATIVE: CASE EVENT DATE: 201910
